FAERS Safety Report 25931461 (Version 1)
Quarter: 2025Q4

REPORT INFORMATION
  Report Type: Spontaneous
  Country: JP (occurrence: JP)
  Receive Date: 20251016
  Receipt Date: 20251016
  Transmission Date: 20260117
  Serious: Yes (Other)
  Sender: TAIHO ONCOLOGY INC
  Company Number: JP-TAIHOP-2025-011150

PATIENT

DRUGS (2)
  1. LONSURF [Suspect]
     Active Substance: TIPIRACIL HYDROCHLORIDE\TRIFLURIDINE
     Indication: Colorectal cancer
     Dosage: DOSE, FREQUENCY, FORM STRENGTH AND CYCLE UNKNOWN
     Route: 048
  2. BEVACIZUMAB [Suspect]
     Active Substance: BEVACIZUMAB
     Indication: Colorectal cancer

REACTIONS (1)
  - Leukoencephalopathy [Not Recovered/Not Resolved]
